FAERS Safety Report 18504111 (Version 1)
Quarter: 2020Q4

REPORT INFORMATION
  Report Type: Spontaneous
  Country: ME (occurrence: ME)
  Receive Date: 20201113
  Receipt Date: 20201113
  Transmission Date: 20210114
  Serious: Yes (Other)
  Sender: FDA-Public Use
  Company Number: ME-009507513-2011MNE007293

PATIENT
  Sex: Male

DRUGS (4)
  1. KEYTRUDA [Suspect]
     Active Substance: PEMBROLIZUMAB
     Indication: NON-SMALL CELL LUNG CANCER
  2. PEMETREXED DISODIUM [Suspect]
     Active Substance: PEMETREXED DISODIUM
  3. CARBOPLATIN. [Suspect]
     Active Substance: CARBOPLATIN
  4. CISPLATIN. [Suspect]
     Active Substance: CISPLATIN

REACTIONS (2)
  - Malignant neoplasm progression [Unknown]
  - Blindness [Unknown]
